FAERS Safety Report 6757895-6 (Version None)
Quarter: 2010Q2

REPORT INFORMATION
  Report Type: 
  Country: None (occurrence: None)
  Receive Date: 20100607
  Receipt Date: 20100531
  Transmission Date: 20101027
  Serious: Yes (Hospitalization)
  Sender: FDA-Public Use
  Company Number: ES-B.I. PHARMACEUTICALS,INC./RIDGEFIELD-2010-ES-00136ES

PATIENT
  Age: 36 Year
  Sex: Male

DRUGS (2)
  1. VIRAMUNE [Suspect]
     Indication: HIV INFECTION
     Dosage: 400 MG
     Route: 048
     Dates: start: 20100420, end: 20100426
  2. VIRAMUNE [Concomitant]
     Dosage: 200 MG
     Route: 048
     Dates: start: 20100406, end: 20100419

REACTIONS (6)
  - DIARRHOEA [None]
  - HEADACHE [None]
  - POLLAKIURIA [None]
  - PYREXIA [None]
  - RASH [None]
  - VOMITING [None]
